FAERS Safety Report 4358583-6 (Version None)
Quarter: 2004Q2

REPORT INFORMATION
  Report Type: 
  Country: None (occurrence: None)
  Receive Date: 20040514
  Receipt Date: 20040511
  Transmission Date: 20050107
  Serious: Yes (Hospitalization)
  Sender: FDA-Public Use
  Company Number: GB-MERCK-0405GBR00075

PATIENT
  Age: 82 Year
  Sex: Male

DRUGS (11)
  1. ACETAMINOPHEN AND DIHYDROCODEINE BITARTRATE [Concomitant]
     Route: 065
  2. ASPIRIN [Concomitant]
     Route: 048
  3. CODEINE [Concomitant]
     Route: 048
  4. DICLOFENAC [Suspect]
     Indication: GOUT
     Route: 048
     Dates: start: 20040401, end: 20040401
  5. DICLOFENAC [Suspect]
     Route: 048
     Dates: start: 20040101, end: 20040401
  6. ESOMEPRAZOLE SODIUM [Concomitant]
     Route: 048
  7. FUROSEMIDE [Concomitant]
     Route: 065
  8. LACTULOSE [Concomitant]
     Route: 065
  9. METOCLOPRAMIDE [Concomitant]
     Route: 065
  10. VIOXX [Suspect]
     Indication: GOUT
     Route: 048
     Dates: start: 20040401
  11. SENNA [Concomitant]
     Route: 065

REACTIONS (6)
  - DIARRHOEA [None]
  - GASTROINTESTINAL HAEMORRHAGE [None]
  - HAEMATEMESIS [None]
  - MELAENA [None]
  - NAUSEA [None]
  - VOMITING [None]
